FAERS Safety Report 10977927 (Version 1)
Quarter: 2015Q2

REPORT INFORMATION
  Report Type: Spontaneous
  Country: JP (occurrence: JP)
  Receive Date: 20150402
  Receipt Date: 20150402
  Transmission Date: 20150821
  Serious: Yes (Hospitalization)
  Sender: FDA-Public Use
  Company Number: JP-NOVOPROD-439071

PATIENT
  Age: 73 Year
  Sex: Male

DRUGS (16)
  1. SUREPOST [Suspect]
     Active Substance: REPAGLINIDE
     Dosage: 1.0 MG, QD
     Route: 048
     Dates: start: 20130417, end: 20130610
  2. SUREPOST [Suspect]
     Active Substance: REPAGLINIDE
     Dosage: 0.5 MG, QD
     Route: 048
     Dates: start: 20130611, end: 20140107
  3. EQUA [Concomitant]
     Active Substance: VILDAGLIPTIN
     Indication: TYPE 2 DIABETES MELLITUS
     Dosage: 100 MG, QD
     Route: 048
     Dates: start: 20110705
  4. SUREPOST [Suspect]
     Active Substance: REPAGLINIDE
     Dosage: UNK
     Route: 048
     Dates: start: 20150206
  5. CRESTOR [Concomitant]
     Active Substance: ROSUVASTATIN CALCIUM
     Indication: HYPERLIPIDAEMIA
     Dosage: 2.5 MG, QD
     Route: 048
     Dates: start: 20110520
  6. EPADEL-S [Concomitant]
     Active Substance: ETHYL ICOSAPENTATE\ICOSAPENT
     Indication: HYPERLIPIDAEMIA
     Dosage: 1800 MG, QD
     Route: 048
     Dates: start: 20110522
  7. FUROSEMIDE. [Concomitant]
     Active Substance: FUROSEMIDE
     Indication: HYPERTENSION
     Dosage: 20 MG, QD
     Route: 048
     Dates: start: 20150204
  8. SUREPOST [Suspect]
     Active Substance: REPAGLINIDE
     Dosage: 1.0 MG, QD
     Route: 048
     Dates: start: 20140108, end: 20141216
  9. SUREPOST [Suspect]
     Active Substance: REPAGLINIDE
     Indication: TYPE 2 DIABETES MELLITUS
     Dosage: 0.5 MG, QD
     Route: 048
     Dates: start: 20120605, end: 20130416
  10. SUREPOST [Suspect]
     Active Substance: REPAGLINIDE
     Dosage: 1.5 MG, QD
     Route: 048
     Dates: start: 20141217, end: 20150204
  11. PANTOSIN [Concomitant]
     Active Substance: PANTETHINE
     Indication: CONSTIPATION
     Dosage: 180 MG, QD
     Route: 048
     Dates: start: 20110526
  12. NU-LOTAN [Concomitant]
     Active Substance: LOSARTAN POTASSIUM
     Indication: HYPERTENSION
     Dosage: 25 MG, QD
     Route: 048
     Dates: start: 20130930
  13. SEIBULE [Concomitant]
     Active Substance: MIGLITOL
     Indication: TYPE 2 DIABETES MELLITUS
     Dosage: 150 MG, QD
     Route: 048
     Dates: start: 20141021, end: 20150204
  14. NEXIUM [Concomitant]
     Active Substance: ESOMEPRAZOLE MAGNESIUM
     Indication: PROPHYLAXIS
     Dosage: 20 MG, QD
     Route: 048
     Dates: start: 20150204
  15. PLAVIX [Concomitant]
     Active Substance: CLOPIDOGREL BISULFATE
     Indication: MYOCARDIAL INFARCTION
     Dosage: 75 MG, QD
     Route: 048
     Dates: start: 20110525
  16. ARTIST [Concomitant]
     Active Substance: CARVEDILOL
     Indication: CARDIAC FAILURE
     Dosage: 5 MG, QD
     Route: 048
     Dates: start: 20110531

REACTIONS (2)
  - Hypoglycaemia [Recovered/Resolved]
  - Gastroenteritis [Recovered/Resolved]

NARRATIVE: CASE EVENT DATE: 20150203
